FAERS Safety Report 7282393 (Version 4)
Quarter: 2013Q2

REPORT INFORMATION
  Report Type: Spontaneous
  Country: US (occurrence: None)
  Receive Date: 20091201
  Receipt Date: 20121203
  Transmission Date: 20140414
  Serious: Yes (Hospitalization, Other)
  Sender: FDA-Public Use
  Company Number: 2009SP016968

PATIENT
  Age: 34 Year
  Sex: Female
  Weight: 117.9 kg

DRUGS (8)
  1. NUVARING (ETONOGESTREL (+) ETHINYL ESTRADIOL) VAGINAL RING [Suspect]
     Indication: MENSTRUAL DISORDER
     Dosage: 1 DF;QM; VAG
     Route: 067
     Dates: start: 200611, end: 200705
  2. BENICAR [Concomitant]
  3. AZMACORT [Concomitant]
  4. METFORMIN HYDROCHLORIDE [Concomitant]
  5. ZANTAC [Concomitant]
  6. RANITIDINE [Concomitant]
  7. IBUPROFEN [Concomitant]
  8. LIPITOR [Concomitant]

REACTIONS (12)
  - PULMONARY EMBOLISM [None]
  - DILATATION VENTRICULAR [None]
  - DYSPEPSIA [None]
  - DYSPHONIA [None]
  - ASTHMA [None]
  - INSOMNIA [None]
  - DEPRESSION [None]
  - Candida infection [None]
  - BRONCHITIS [None]
  - Infection [None]
  - Dyspepsia [None]
  - Off label use [None]
